FAERS Safety Report 16731841 (Version 1)
Quarter: 2019Q3

REPORT INFORMATION
  Report Type: Spontaneous
  Country: GB (occurrence: GB)
  Receive Date: 20190822
  Receipt Date: 20190822
  Transmission Date: 20191005
  Serious: Yes (Other)
  Sender: FDA-Public Use
  Company Number: GB-MYLANLABS-2019M1077973

PATIENT
  Age: 53 Year
  Sex: Male

DRUGS (9)
  1. HYOSCINE [Concomitant]
     Active Substance: SCOPOLAMINE
     Indication: SALIVARY HYPERSECRETION
     Dosage: UNK
  2. AMISULPRIDE [Concomitant]
     Active Substance: AMISULPRIDE
     Indication: DRUG THERAPY ENHANCEMENT
     Dosage: 400 MILLIGRAM, QD
     Dates: start: 2010
  3. PHENOXYMETHYLPENICILLIN [Concomitant]
     Active Substance: PENICILLIN V
     Dosage: UNK
  4. OMEPRAZOLE. [Suspect]
     Active Substance: OMEPRAZOLE
     Indication: PRODUCT USED FOR UNKNOWN INDICATION
     Dosage: 20 MILLIGRAM, QD
     Dates: start: 2010, end: 2017
  5. LORAZEPAM. [Concomitant]
     Active Substance: LORAZEPAM
     Dosage: UNK
  6. PANTOPRAZOLE [Concomitant]
     Active Substance: PANTOPRAZOLE
     Dosage: UNK
     Dates: start: 2017
  7. ZAPONEX [Suspect]
     Active Substance: CLOZAPINE
     Indication: PRODUCT USED FOR UNKNOWN INDICATION
     Dosage: 600 MILLIGRAM, QD
     Route: 048
     Dates: start: 20090717
  8. ATORVASTATIN [Concomitant]
     Active Substance: ATORVASTATIN
     Dosage: 40 MILLIGRAM, QD
  9. DIAZEPAM. [Concomitant]
     Active Substance: DIAZEPAM
     Dosage: 5 MILLIGRAM, QD

REACTIONS (6)
  - Condition aggravated [Unknown]
  - Mental impairment [Unknown]
  - Weight increased [Unknown]
  - Influenza [Not Recovered/Not Resolved]
  - Salivary hypersecretion [Unknown]
  - Antipsychotic drug level decreased [Not Recovered/Not Resolved]

NARRATIVE: CASE EVENT DATE: 2016
